FAERS Safety Report 4347495-X (Version None)
Quarter: 2004Q2

REPORT INFORMATION
  Report Type: 
  Country: None (occurrence: None)
  Receive Date: 20040421
  Receipt Date: 20040203
  Transmission Date: 20050107
  Serious: Yes (Other)
  Sender: FDA-Public Use
  Company Number: 2003116217

PATIENT
  Age: 43 Year
  Sex: Female

DRUGS (8)
  1. RELPAX [Suspect]
     Indication: HEADACHE
     Dosage: 80 MG (PRN)
     Dates: end: 20031029
  2. TOPIRAMATE [Suspect]
     Indication: HEADACHE
     Dosage: 200 MG (HS)
     Dates: end: 20031110
  3. BACLOFEN [Concomitant]
  4. ESTRATEST HS (METHYLTESTOSTERONE, ESTROGENS ESTERIFIED) [Concomitant]
  5. HYDROCODONE (HYDROCODONE) [Concomitant]
  6. VALDECOXIB [Concomitant]
  7. SERTRALINE HCL [Concomitant]
  8. ALPRAZOLAM [Concomitant]

REACTIONS (1)
  - PARAESTHESIA [None]
